FAERS Safety Report 9174853 (Version 3)
Quarter: 2013Q4

REPORT INFORMATION
  Report Type: Spontaneous
  Country: US (occurrence: US)
  Receive Date: 20130320
  Receipt Date: 20131016
  Transmission Date: 20140711
  Serious: Yes (Hospitalization, Disabling, Other)
  Sender: FDA-Public Use
  Company Number: US-009507513-0808USA05371

PATIENT
  Sex: Female
  Weight: 65.76 kg

DRUGS (8)
  1. FOSAMAX [Suspect]
     Dosage: 70 MG, QW
     Route: 048
     Dates: start: 2002, end: 200605
  2. FOSAMAX [Suspect]
     Dosage: 70 MG, EVERY 2 WEEKS
     Route: 048
     Dates: start: 20030707
  3. HORMONES (UNSPECIFIED) [Concomitant]
     Dates: start: 1983
  4. THERAPY UNSPECIFIED [Concomitant]
     Indication: HYPERTENSION
     Dates: start: 1995
  5. DENAVIR [Concomitant]
     Indication: HERPES SIMPLEX
     Dosage: UNK
     Dates: start: 2002
  6. RESTASIS [Concomitant]
     Indication: DRY EYE
  7. SYSTANE [Concomitant]
     Indication: DRY EYE
  8. VALTREX [Concomitant]
     Indication: HERPES SIMPLEX
     Dosage: 1 G, BID PRN

REACTIONS (72)
  - Jaw disorder [Unknown]
  - Adhesion [Unknown]
  - Bone disorder [Unknown]
  - Bone graft [Unknown]
  - Bone graft [Unknown]
  - Fibula fracture [Not Recovered/Not Resolved]
  - Internal fixation of fracture [Unknown]
  - Bone graft [Unknown]
  - Peroneal nerve palsy [Unknown]
  - Plasmacytoma [Not Recovered/Not Resolved]
  - Peripheral nerve decompression [Unknown]
  - Device failure [Unknown]
  - Open reduction of fracture [Unknown]
  - Bone graft [Unknown]
  - Debridement [Unknown]
  - Arthropathy [Unknown]
  - Intervertebral disc disorder [Unknown]
  - Fracture delayed union [Not Recovered/Not Resolved]
  - Osteolysis [Unknown]
  - Osteomyelitis fungal [Not Recovered/Not Resolved]
  - Joint injury [Unknown]
  - Synovitis [Unknown]
  - Bone lesion [Unknown]
  - Impaired healing [Unknown]
  - Ligament rupture [Unknown]
  - Pain [Not Recovered/Not Resolved]
  - Dental caries [Unknown]
  - Oral infection [Unknown]
  - Hypoaesthesia [Unknown]
  - Trismus [Unknown]
  - Foot fracture [Unknown]
  - Bone lesion [Not Recovered/Not Resolved]
  - Sinus congestion [Not Recovered/Not Resolved]
  - Epistaxis [Unknown]
  - Oropharyngeal pain [Unknown]
  - Dysphonia [Unknown]
  - Pneumonia [Unknown]
  - Diverticulitis [Unknown]
  - Sialoadenitis [Unknown]
  - Dental caries [Unknown]
  - Atypical mycobacterial infection [Unknown]
  - Rosacea [Unknown]
  - Bone lesion [Unknown]
  - Exostosis [Unknown]
  - Inappropriate schedule of drug administration [Unknown]
  - Mixed connective tissue disease [Unknown]
  - Insomnia [Unknown]
  - Paraesthesia [Unknown]
  - Facial pain [Unknown]
  - Facial spasm [Unknown]
  - Complex regional pain syndrome [Unknown]
  - Tooth fracture [Unknown]
  - Tooth fracture [Unknown]
  - Alveolar osteitis [Unknown]
  - Lumbar radiculopathy [Unknown]
  - Intervertebral disc protrusion [Unknown]
  - Sinusitis [Unknown]
  - Bladder disorder [Unknown]
  - Cough [Unknown]
  - Hyperhidrosis [Unknown]
  - Osteoarthritis [Unknown]
  - Paraesthesia [Unknown]
  - Oophorectomy [Unknown]
  - Body height decreased [Unknown]
  - Deep vein thrombosis [Unknown]
  - Affect lability [Unknown]
  - Pain in jaw [Unknown]
  - Back pain [Unknown]
  - Oedema mouth [Unknown]
  - Drug ineffective [Unknown]
  - Dyspepsia [Unknown]
  - Pain in extremity [Not Recovered/Not Resolved]
